FAERS Safety Report 21519998 (Version 2)
Quarter: 2022Q4

REPORT INFORMATION
  Report Type: Spontaneous
  Country: BR (occurrence: BR)
  Receive Date: 20221028
  Receipt Date: 20221102
  Transmission Date: 20230113
  Serious: Yes (Other)
  Sender: FDA-Public Use
  Company Number: BR-SUN PHARMACEUTICAL INDUSTRIES LTD-2022R1-360585

PATIENT
  Sex: Female

DRUGS (7)
  1. CARBOPLATIN [Suspect]
     Active Substance: CARBOPLATIN
     Indication: Invasive ductal breast carcinoma
     Dosage: AUC 6
     Route: 042
  2. APREPITANT [Concomitant]
     Active Substance: APREPITANT
     Indication: Invasive ductal breast carcinoma
     Dosage: 150 MILLIGRAM
     Route: 065
  3. DOCETAXEL [Concomitant]
     Active Substance: DOCETAXEL
     Indication: Invasive ductal breast carcinoma
     Dosage: 75 MILLIGRAM/SQ. METER
     Route: 042
  4. GOSERELIN ACETATE [Concomitant]
     Active Substance: GOSERELIN ACETATE
     Indication: Invasive ductal breast carcinoma
     Dosage: 3.6 MILLIGRAM
     Route: 065
  5. LIPEGFILGRASTIM [Concomitant]
     Active Substance: LIPEGFILGRASTIM
     Indication: Invasive ductal breast carcinoma
     Dosage: 6 MILLIGRAM
     Route: 065
  6. PERTUZUMAB [Concomitant]
     Active Substance: PERTUZUMAB
     Indication: Invasive ductal breast carcinoma
     Dosage: 840 MILLIGRAM
     Route: 042
  7. TRASTUZUMAB [Concomitant]
     Active Substance: TRASTUZUMAB
     Indication: Invasive ductal breast carcinoma
     Dosage: 8 MILLIGRAM/KILOGRAM
     Route: 042

REACTIONS (1)
  - Haematuria [Recovered/Resolved]
